FAERS Safety Report 9705113 (Version 2)
Quarter: 2014Q1

REPORT INFORMATION
  Report Type: Spontaneous
  Country: US (occurrence: US)
  Receive Date: 20131122
  Receipt Date: 20140210
  Transmission Date: 20141002
  Serious: Yes (Life-Threatening, Hospitalization, Other)
  Sender: FDA-Public Use
  Company Number: US-ALLERGAN-1318197US

PATIENT
  Age: 47 Year
  Sex: Male

DRUGS (3)
  1. BOTOX [Suspect]
     Indication: OESOPHAGEAL ACHALASIA
     Dosage: 90 UNITS, SINGLE
     Route: 030
  2. FENTANYL [Concomitant]
     Indication: ANAESTHESIA PROCEDURE
     Dosage: 2 MG, SINGLE
     Route: 042
  3. MIDAZOLAM [Concomitant]
     Indication: ANAESTHESIA PROCEDURE
     Dosage: 5 MG, SINGLE
     Route: 042

REACTIONS (3)
  - Laryngeal oedema [Recovered/Resolved]
  - Anaphylactic reaction [Recovered/Resolved]
  - Off label use [Unknown]
